FAERS Safety Report 5115569-1 (Version None)
Quarter: 2006Q3

REPORT INFORMATION
  Report Type: 
  Country: None (occurrence: None)
  Receive Date: 20060925
  Receipt Date: 20060911
  Transmission Date: 20061208
  Serious: Yes (Other)
  Sender: FDA-Public Use
  Company Number: 2006AP000702

PATIENT
  Age: 83 Year
  Sex: Female

DRUGS (9)
  1. MINOXIDIL [Suspect]
     Indication: HAIR GROWTH ABNORMAL
     Dosage: 1 ML; BID; TOP
     Route: 061
     Dates: start: 20030101, end: 20060201
  2. PROCARDIA [Concomitant]
  3. PRINIVIL [Concomitant]
  4. BUMEX [Concomitant]
  5. SYNTHROID [Concomitant]
  6. ATACAND [Concomitant]
  7. NORVASC [Concomitant]
  8. ASPIRIN [Concomitant]
  9. VITAMINS NOS [Concomitant]

REACTIONS (4)
  - AORTIC VALVE REPLACEMENT [None]
  - CORONARY ARTERY BYPASS [None]
  - DYSPNOEA [None]
  - HAIR GROWTH ABNORMAL [None]
